FAERS Safety Report 9082078 (Version 1)
Quarter: 2013Q1

REPORT INFORMATION
  Report Type: Report from Study
  Country: US (occurrence: US)
  Receive Date: 20130131
  Receipt Date: 20130131
  Transmission Date: 20140127
  Serious: No
  Sender: FDA-Public Use
  Company Number: US-ABBOTT-12P-163-0989503-00

PATIENT
  Sex: Female
  Weight: 72.64 kg

DRUGS (3)
  1. HUMIRA [Suspect]
     Indication: ANKYLOSING SPONDYLITIS
     Dates: start: 2009, end: 201206
  2. HUMIRA [Suspect]
     Dates: start: 201206
  3. PREDNISONE (NON-ABBOTT) [Concomitant]
     Indication: ANKYLOSING SPONDYLITIS

REACTIONS (2)
  - Drug dose omission [Recovered/Resolved]
  - Ankylosing spondylitis [Not Recovered/Not Resolved]
